FAERS Safety Report 13178176 (Version 2)
Quarter: 2017Q1

REPORT INFORMATION
  Report Type: Report from Study
  Country: US (occurrence: US)
  Receive Date: 20170202
  Receipt Date: 20170331
  Transmission Date: 20170428
  Serious: No
  Sender: FDA-Public Use
  Company Number: US-AMGEN-USASL2017015517

PATIENT
  Sex: Male

DRUGS (1)
  1. ENBREL [Suspect]
     Active Substance: ETANERCEPT
     Indication: PYREXIA
     Dosage: 50 MG, UNK
     Route: 065

REACTIONS (3)
  - Pain [Unknown]
  - Off label use [Unknown]
  - Pyrexia [Recovered/Resolved]
